FAERS Safety Report 4349006-1 (Version None)
Quarter: 2004Q2

REPORT INFORMATION
  Report Type: 
  Country: None (occurrence: None)
  Receive Date: 20040426
  Receipt Date: 20040426
  Transmission Date: 20050107
  Serious: Yes (Death)
  Sender: FDA-Public Use
  Company Number: None

PATIENT
  Age: 43 Year
  Sex: Female
  Weight: 138 kg

DRUGS (5)
  1. ETOPOSIDE [Suspect]
     Indication: LYMPHOMA
     Dosage: 8280 MG X 1 IV
     Route: 042
     Dates: start: 20040402
  2. ETOPOSIDE [Suspect]
     Indication: STEM CELL TRANSPLANT
     Dosage: 8280 MG X 1 IV
     Route: 042
     Dates: start: 20040402
  3. TBI [Concomitant]
  4. ETOPOSIDE [Concomitant]
  5. CYTOXAN [Concomitant]

REACTIONS (12)
  - BRAIN HERNIATION [None]
  - DISSEMINATED INTRAVASCULAR COAGULATION [None]
  - GENERAL PHYSICAL HEALTH DETERIORATION [None]
  - HEPATIC FUNCTION ABNORMAL [None]
  - HYPERTENSION [None]
  - HYPOTENSION [None]
  - MUCOSAL INFLAMMATION [None]
  - MYDRIASIS [None]
  - PYREXIA [None]
  - SEPTIC SHOCK [None]
  - TOXIC EPIDERMAL NECROLYSIS [None]
  - URINE OUTPUT DECREASED [None]
